FAERS Safety Report 7434451-8 (Version None)
Quarter: 2011Q2

REPORT INFORMATION
  Report Type: 
  Country: None (occurrence: None)
  Receive Date: 20110415
  Receipt Date: 20110406
  Transmission Date: 20111010
  Serious: Yes (Other)
  Sender: FDA-Public Use
  Company Number: GB-001649

PATIENT
  Sex: Male

DRUGS (1)
  1. NAGLAZYME [Suspect]
     Indication: MUCOPOLYSACCHARIDOSIS VI
     Dosage: 1 MG/KG 1X/WEEK, INTRAVENOUS DRIP
     Route: 041
     Dates: start: 20030915

REACTIONS (5)
  - HYPOAESTHESIA FACIAL [None]
  - MALAISE [None]
  - SYNCOPE [None]
  - VIITH NERVE PARALYSIS [None]
  - RESPIRATORY ARREST [None]
